FAERS Safety Report 16546866 (Version 1)
Quarter: 2019Q3

REPORT INFORMATION
  Report Type: Spontaneous
  Country: US (occurrence: US)
  Receive Date: 20190709
  Receipt Date: 20190709
  Transmission Date: 20191004
  Serious: Yes (Hospitalization)
  Sender: FDA-Public Use
  Company Number: US-ASTELLAS-2018US049508AA

PATIENT
  Sex: Female

DRUGS (1)
  1. MYRBETRIQ [Suspect]
     Active Substance: MIRABEGRON
     Indication: PRODUCT USED FOR UNKNOWN INDICATION
     Dosage: UNK, UNKNOWN FREQ.
     Route: 065

REACTIONS (7)
  - Urine abnormality [Unknown]
  - Coma [Unknown]
  - Cystitis noninfective [Unknown]
  - Dyspnoea [Unknown]
  - Urine flow decreased [Unknown]
  - Dysuria [Unknown]
  - Pyrexia [Unknown]
